FAERS Safety Report 18527683 (Version 5)
Quarter: 2021Q1

REPORT INFORMATION
  Report Type: Report from Study
  Country: GB (occurrence: GB)
  Receive Date: 20201120
  Receipt Date: 20210204
  Transmission Date: 20210419
  Serious: Yes (Life-Threatening, Other)
  Sender: FDA-Public Use
  Company Number: GB-TAKEDA-2020TUS030113

PATIENT
  Age: 71 Year
  Sex: Male
  Weight: 81 kg

DRUGS (4)
  1. IXAZOMIB [Suspect]
     Active Substance: IXAZOMIB
     Indication: PLASMA CELL MYELOMA
     Dosage: 4 MILLIGRAM
     Route: 048
     Dates: start: 20200228
  2. REVLIMID [Concomitant]
     Active Substance: LENALIDOMIDE
     Indication: PLASMA CELL MYELOMA
     Dosage: 10 MILLIGRAM
     Route: 048
     Dates: start: 20200228
  3. DECADRON [Concomitant]
     Active Substance: DEXAMETHASONE
     Indication: PLASMA CELL MYELOMA
     Dosage: 40 MILLIGRAM
     Route: 048
     Dates: start: 20200228
  4. BONEFOS [Concomitant]
     Active Substance: CLODRONATE DISODIUM

REACTIONS (2)
  - Thrombocytopenia [Not Recovered/Not Resolved]
  - Squamous cell carcinoma [Recovered/Resolved with Sequelae]

NARRATIVE: CASE EVENT DATE: 20200604
